FAERS Safety Report 8501095-6 (Version None)
Quarter: 2012Q3

REPORT INFORMATION
  Report Type: 
  Country: None (occurrence: None)
  Receive Date: 20120710
  Receipt Date: 20120628
  Transmission Date: 20120928
  Serious: Yes (Hospitalization, Disabling, Other)
  Sender: FDA-Public Use
  Company Number: US-ELI_LILLY_AND_COMPANY-US201206009651

PATIENT
  Sex: Male

DRUGS (10)
  1. HUMULIN N [Suspect]
     Indication: DIABETES MELLITUS
     Dosage: 44 U, PRN
     Dates: start: 19840101
  2. LOVASTATIN [Concomitant]
     Dosage: 20 MG, QD
  3. HUMALOG [Suspect]
     Indication: DIABETES MELLITUS
     Dosage: 2 U, PRN
     Dates: start: 20020101
  4. VITAMIN D [Concomitant]
     Dosage: 1000 MG, QD
  5. HUMULIN 70/30 [Suspect]
     Indication: DIABETES MELLITUS
  6. FOSINOPRIL SODIUM [Concomitant]
     Dosage: 40 MG, QD
  7. VITAMIN TAB [Concomitant]
     Dosage: 1 DF, QD
  8. AMLODIPINE [Concomitant]
     Dosage: 5 MG, QD
  9. METPROLOL [Concomitant]
     Dosage: 100 MG, BID
  10. ASPIRIN [Concomitant]
     Dosage: 80 MG, QD

REACTIONS (7)
  - RETINAL DETACHMENT [None]
  - VISUAL ACUITY REDUCED [None]
  - DRUG INEFFECTIVE [None]
  - BLOOD GLUCOSE INCREASED [None]
  - DIABETIC COMA [None]
  - BLOOD GLUCOSE DECREASED [None]
  - BLINDNESS UNILATERAL [None]
